FAERS Safety Report 15636685 (Version 1)
Quarter: 2018Q4

REPORT INFORMATION
  Report Type: Spontaneous
  Country: US (occurrence: US)
  Receive Date: 20181120
  Receipt Date: 20181120
  Transmission Date: 20190205
  Serious: Yes (Hospitalization, Other)
  Sender: FDA-Public Use
  Company Number: US-BAYER-2018-211770

PATIENT
  Age: 27 Year
  Sex: Female

DRUGS (1)
  1. PARACETAMOL [Suspect]
     Active Substance: ACETAMINOPHEN
     Indication: TOOTHACHE
     Dosage: FULL BOTTLE
     Route: 048

REACTIONS (6)
  - Exposure during pregnancy [Recovering/Resolving]
  - Drug level increased [Recovering/Resolving]
  - Coagulation test abnormal [Recovering/Resolving]
  - Premature labour [None]
  - Overdose [Recovering/Resolving]
  - Drug-induced liver injury [Recovering/Resolving]
